FAERS Safety Report 21247365 (Version 2)
Quarter: 2022Q3

REPORT INFORMATION
  Report Type: Spontaneous
  Country: UA (occurrence: UA)
  Receive Date: 20220824
  Receipt Date: 20220830
  Transmission Date: 20221027
  Serious: Yes (Hospitalization, Other)
  Sender: FDA-Public Use
  Company Number: UA-MLMSERVICE-20220812-3731989-1

PATIENT
  Age: 4 Year
  Sex: Female

DRUGS (3)
  1. IBUPROFEN [Suspect]
     Active Substance: IBUPROFEN
     Indication: Pyrexia
     Dosage: AT A TIME EVERY 7-8 HOURS
     Route: 048
  2. ACETONE\BORIC ACID\RESORCINOL [Concomitant]
     Active Substance: ACETONE\BORIC ACID\RESORCINOL
     Indication: Supportive care
     Dosage: UNK
     Route: 061
  3. ACETONE\BORIC ACID\RESORCINOL [Concomitant]
     Active Substance: ACETONE\BORIC ACID\RESORCINOL
     Route: 061

REACTIONS (1)
  - Pyoderma streptococcal [Recovered/Resolved]
